FAERS Safety Report 19165229 (Version 4)
Quarter: 2021Q2

REPORT INFORMATION
  Report Type: Spontaneous
  Country: DE (occurrence: DE)
  Receive Date: 20210421
  Receipt Date: 20210618
  Transmission Date: 20210717
  Serious: Yes (Death)
  Sender: FDA-Public Use
  Company Number: DE-ALXN-A202104697

PATIENT
  Age: 82 Year
  Sex: Female
  Weight: 70 kg

DRUGS (5)
  1. SOLIRIS [Suspect]
     Active Substance: ECULIZUMAB
     Dosage: 1200 MG, Q2W DOSES 6?12
     Route: 065
     Dates: start: 20200318, end: 20200610
  2. SOLIRIS [Suspect]
     Active Substance: ECULIZUMAB
     Indication: ATYPICAL HAEMOLYTIC URAEMIC SYNDROME
     Dosage: 900 MG, QW, DOSES 1?4
     Route: 065
     Dates: start: 20200129, end: 20200220
  3. SOLIRIS [Suspect]
     Active Substance: ECULIZUMAB
     Dosage: 1200 MG, UNK DOSE 4
     Route: 065
     Dates: start: 20200227
  4. SOLIRIS [Suspect]
     Active Substance: ECULIZUMAB
     Dosage: 1200 MG, UNK, DOSE 14
     Route: 065
     Dates: end: 20200827
  5. SOLIRIS [Suspect]
     Active Substance: ECULIZUMAB
     Dosage: 1200 MG, UNK, DOSE 13
     Route: 065
     Dates: start: 20200807

REACTIONS (2)
  - General physical health deterioration [Fatal]
  - Suspected COVID-19 [Fatal]
